FAERS Safety Report 11146201 (Version 1)
Quarter: 2015Q2

REPORT INFORMATION
  Report Type: Spontaneous
  Country: US (occurrence: US)
  Receive Date: 20150528
  Receipt Date: 20150528
  Transmission Date: 20150821
  Serious: No
  Sender: FDA-Public Use
  Company Number: US-PFIZER INC-2015176993

PATIENT
  Sex: Female
  Weight: 72.56 kg

DRUGS (1)
  1. GENOTROPIN [Suspect]
     Active Substance: SOMATROPIN
     Dosage: 12 MG CARTRIDGES

REACTIONS (4)
  - Blood growth hormone increased [Unknown]
  - Abnormal behaviour [Unknown]
  - Anger [Unknown]
  - Incorrect dose administered [Unknown]
